FAERS Safety Report 4649331-0 (Version None)
Quarter: 2005Q2

REPORT INFORMATION
  Report Type: 
  Country: None (occurrence: None)
  Receive Date: 20050429
  Receipt Date: 20050421
  Transmission Date: 20051028
  Serious: Yes (Hospitalization, Other)
  Sender: FDA-Public Use
  Company Number: US-ABBOTT-05P-163-0298039-00

PATIENT
  Age: 60 Year
  Sex: Female
  Weight: 68.1 kg

DRUGS (8)
  1. DEPAKOTE [Suspect]
     Indication: BIPOLAR DISORDER
     Route: 048
     Dates: start: 20041101, end: 20050201
  2. LAMOTRIGINE [Interacting]
     Indication: BIPOLAR DISORDER
     Route: 065
     Dates: start: 20040101
  3. LITHIUM CARBONATE [Suspect]
     Indication: DRUG USE FOR UNKNOWN INDICATION
     Route: 065
  4. VENLAFAXINE HCL [Concomitant]
     Indication: DRUG USE FOR UNKNOWN INDICATION
  5. CLONAZEPAM [Concomitant]
     Indication: DRUG USE FOR UNKNOWN INDICATION
  6. ABILIFY [Concomitant]
     Indication: DRUG USE FOR UNKNOWN INDICATION
  7. UNKNOWN MEDICATION [Concomitant]
     Indication: BLOOD PRESSURE
  8. UNKNOWN MEDICATION [Concomitant]
     Indication: DIABETES MELLITUS

REACTIONS (7)
  - BLOOD POTASSIUM ABNORMAL [None]
  - COGNITIVE DISORDER [None]
  - DRUG INTERACTION [None]
  - HYPERNATRAEMIA [None]
  - LEUKOCYTOSIS [None]
  - NEUROLOGICAL EXAMINATION ABNORMAL [None]
  - WHITE BLOOD CELL COUNT INCREASED [None]
